FAERS Safety Report 9537711 (Version 2)
Quarter: 2013Q3

REPORT INFORMATION
  Report Type: Report from Study
  Country: CA (occurrence: CA)
  Receive Date: 20130919
  Receipt Date: 20130919
  Transmission Date: 20140515
  Serious: Yes (Hospitalization, Other)
  Sender: FDA-Public Use
  Company Number: CA-ABBVIE-13P-028-1062508-00

PATIENT
  Sex: Male
  Weight: 86.26 kg

DRUGS (18)
  1. HUMIRA [Suspect]
     Indication: RHEUMATOID ARTHRITIS
     Route: 058
     Dates: start: 200708, end: 200902
  2. HUMIRA [Suspect]
     Route: 058
     Dates: start: 201104
  3. CRESTOR [Concomitant]
     Indication: BLOOD CHOLESTEROL INCREASED
     Route: 048
  4. RAMIPRIL [Concomitant]
     Indication: HYPERTENSION
     Route: 048
  5. TECTA [Concomitant]
     Indication: HIATUS HERNIA
     Route: 048
  6. AMITRIPTYLINE [Concomitant]
     Indication: URINARY TRACT DISORDER
     Route: 048
  7. LORAZEPAM [Concomitant]
     Indication: INSOMNIA
     Route: 048
  8. SPIRIVA [Concomitant]
     Indication: CHRONIC OBSTRUCTIVE PULMONARY DISEASE
     Route: 055
  9. GEN-BECLO [Concomitant]
     Indication: NASAL CONGESTION
     Route: 048
  10. BIMATOPROST [Concomitant]
     Indication: GLAUCOMA
     Dosage: QHS
  11. HYDROXYCHLOROQUINE [Concomitant]
     Indication: RHEUMATOID ARTHRITIS
     Route: 048
  12. ASPIRIN [Concomitant]
     Indication: ISCHAEMIC HEART DISEASE PROPHYLAXIS
     Route: 048
  13. VITAMIN C [Concomitant]
     Indication: VITAMIN SUPPLEMENTATION
  14. VITAMIN D [Concomitant]
     Indication: VITAMIN SUPPLEMENTATION
  15. MULTIVITAMIN [Concomitant]
     Indication: VITAMIN SUPPLEMENTATION
  16. OMEGA-3 [Concomitant]
     Indication: SUPPLEMENTATION THERAPY
  17. NAPROXEN [Concomitant]
     Indication: PRODUCT USED FOR UNKNOWN INDICATION
  18. LYRICA [Concomitant]
     Indication: PRODUCT USED FOR UNKNOWN INDICATION

REACTIONS (18)
  - Gallbladder pain [Unknown]
  - Cataract [Unknown]
  - Squamous cell carcinoma of skin [Unknown]
  - Squamous cell carcinoma of skin [Unknown]
  - Pneumonia [Unknown]
  - Pneumonia [Unknown]
  - Pneumonia [Unknown]
  - Bronchitis [Unknown]
  - Bronchitis [Unknown]
  - Bronchitis [Unknown]
  - Tonsillectomy [Unknown]
  - Infection [Unknown]
  - Nail operation [Unknown]
  - Blood cholesterol increased [Unknown]
  - Cholelithiasis [Not Recovered/Not Resolved]
  - Rheumatoid arthritis [Unknown]
  - Chronic obstructive pulmonary disease [Unknown]
  - Laboratory test abnormal [Unknown]
